FAERS Safety Report 9178158 (Version 1)
Quarter: 2013Q1

REPORT INFORMATION
  Report Type: Spontaneous
  Country: US (occurrence: US)
  Receive Date: 20130321
  Receipt Date: 20130321
  Transmission Date: 20140127
  Serious: Yes (Other)
  Sender: FDA-Public Use
  Company Number: US-PFIZER INC-2010174175

PATIENT
  Age: 58 Year
  Sex: Male

DRUGS (5)
  1. FLUOXETINE HCL [Suspect]
     Dosage: UNK
     Route: 065
  2. AZITHROMYCIN [Suspect]
     Dosage: UNK
     Route: 065
  3. SULFAMETHOXAZOLE/TRIMETHOPRIM [Suspect]
     Dosage: UNK
     Route: 065
  4. DILTIAZEM [Suspect]
     Dosage: 240 MG DAILY
     Route: 065
  5. FLECAINIDE [Suspect]
     Dosage: 100 MG, 2X/DAY
     Route: 065

REACTIONS (5)
  - Electrocardiogram QT prolonged [Unknown]
  - Atrioventricular block first degree [Unknown]
  - Dilatation atrial [Unknown]
  - Dilatation ventricular [Unknown]
  - Atrial conduction time prolongation [Unknown]
